FAERS Safety Report 5710785-X (Version None)
Quarter: 2008Q2

REPORT INFORMATION
  Report Type: 
  Country: None (occurrence: None)
  Receive Date: 20080417
  Receipt Date: 20080417
  Transmission Date: 20081010
  Serious: Yes (Hospitalization)
  Sender: FDA-Public Use
  Company Number: None

PATIENT
  Sex: Female
  Weight: 159.5 kg

DRUGS (2)
  1. CISPLATIN [Suspect]
     Dosage: 154 MG
     Dates: end: 20080401
  2. TAXOTERE [Suspect]
     Dosage: 154 MG
     Dates: end: 20080401

REACTIONS (8)
  - ANOREXIA [None]
  - CONDITION AGGRAVATED [None]
  - DIARRHOEA [None]
  - INCREASED UPPER AIRWAY SECRETION [None]
  - NAUSEA [None]
  - OCCULT BLOOD POSITIVE [None]
  - ORAL INTAKE REDUCED [None]
  - VOMITING [None]
